FAERS Safety Report 15568759 (Version 2)
Quarter: 2019Q2

REPORT INFORMATION
  Report Type: Spontaneous
  Country: US (occurrence: US)
  Receive Date: 20181031
  Receipt Date: 20190628
  Transmission Date: 20190711
  Serious: Yes (Life-Threatening, Hospitalization, Other)
  Sender: FDA-Public Use
  Company Number: US-ACCORD-089759

PATIENT
  Age: 20 Year
  Sex: Male

DRUGS (4)
  1. CLOZAPINE. [Suspect]
     Active Substance: CLOZAPINE
     Indication: SCHIZOPHRENIA
     Dosage: 800 MG/D (HIGH MAINTENANCE DOSING 800 MG/D)
  2. METHOHEXITAL [Concomitant]
     Active Substance: METHOHEXITAL
     Indication: ANAESTHESIA
     Dosage: 1.5 MG/KG
  3. PROPOFOL. [Concomitant]
     Active Substance: PROPOFOL
  4. SUXAMETHONIUM [Concomitant]
     Active Substance: SUCCINYLCHOLINE
     Indication: ANAESTHESIA
     Dosage: 1 MG/KG

REACTIONS (2)
  - Gastric hypomotility [Recovered/Resolved]
  - Aspiration [Recovered/Resolved]
